FAERS Safety Report 24344657 (Version 1)
Quarter: 2024Q3

REPORT INFORMATION
  Report Type: Spontaneous
  Country: IT (occurrence: IT)
  Receive Date: 20240920
  Receipt Date: 20240920
  Transmission Date: 20241016
  Serious: Yes (Hospitalization, Other)
  Sender: GLAXOSMITHKLINE
  Company Number: IT-GSKCCFEMEA-Case-02066624_AE-87822

PATIENT

DRUGS (1)
  1. JEMPERLI [Suspect]
     Active Substance: DOSTARLIMAB-GXLY
     Indication: Endometrial adenocarcinoma
     Dosage: UNK
     Dates: start: 202401

REACTIONS (7)
  - Vomiting [Not Recovered/Not Resolved]
  - Feeding disorder [Not Recovered/Not Resolved]
  - Pancreatitis acute [Not Recovered/Not Resolved]
  - Cerebral thrombosis [Not Recovered/Not Resolved]
  - Cerebral venous sinus thrombosis [Not Recovered/Not Resolved]
  - Abdominal pain upper [Not Recovered/Not Resolved]
  - Gastritis [Not Recovered/Not Resolved]

NARRATIVE: CASE EVENT DATE: 20240701
